FAERS Safety Report 6003559-6 (Version None)
Quarter: 2008Q4

REPORT INFORMATION
  Report Type: 
  Country: None (occurrence: None)
  Receive Date: 20081216
  Receipt Date: 20081204
  Transmission Date: 20090506
  Serious: No
  Sender: FDA-Public Use
  Company Number: BR-ROCHE-556817

PATIENT
  Age: 36 Year
  Sex: Female
  Weight: 62 kg

DRUGS (1)
  1. ROACUTAN [Suspect]
     Indication: ILL-DEFINED DISORDER
     Route: 048
     Dates: start: 20070801, end: 20080201

REACTIONS (2)
  - NO ADVERSE EVENT [None]
  - PREGNANCY [None]
